FAERS Safety Report 8028491-8 (Version None)
Quarter: 2012Q1

REPORT INFORMATION
  Report Type: 
  Country: None (occurrence: None)
  Receive Date: 20120106
  Receipt Date: 20110913
  Transmission Date: 20120608
  Serious: No
  Sender: FDA-Public Use
  Company Number: US-MYLANLABS-2011S1019273

PATIENT
  Age: 87 Year
  Sex: Male

DRUGS (5)
  1. LOTREL [Concomitant]
     Indication: CARDIAC MURMUR
     Route: 048
  2. NEXIUM [Concomitant]
     Indication: NEOPLASM MALIGNANT
     Route: 048
  3. CETIRIZINE HYDROCHLORIDE [Suspect]
     Indication: MULTIPLE ALLERGIES
     Route: 048
     Dates: start: 20110719
  4. ASPIRIN [Concomitant]
     Route: 048
  5. NASAL /00075401/ [Concomitant]
     Indication: MULTIPLE ALLERGIES

REACTIONS (1)
  - DIARRHOEA [None]
